FAERS Safety Report 7043525-5 (Version None)
Quarter: 2010Q4

REPORT INFORMATION
  Report Type: 
  Country: None (occurrence: None)
  Receive Date: 20101013
  Receipt Date: 20101007
  Transmission Date: 20110411
  Serious: Yes (Hospitalization)
  Sender: FDA-Public Use
  Company Number: A0764682A

PATIENT
  Age: 64 Year
  Sex: Male
  Weight: 136.4 kg

DRUGS (12)
  1. AVANDIA [Suspect]
     Dosage: 4MG TWICE PER DAY
     Route: 048
     Dates: start: 19990101, end: 20040101
  2. GLYBURIDE [Concomitant]
  3. GLUCOTROL [Concomitant]
  4. LASIX [Concomitant]
  5. NITROGLYCERIN [Concomitant]
  6. ASPIRIN [Concomitant]
  7. ALBUTEROL [Concomitant]
  8. TERAZOSIN HCL [Concomitant]
  9. FOSINOPRIL [Concomitant]
  10. DILTIAZEM [Concomitant]
  11. ALLEGRA [Concomitant]
  12. FLUNISOLIDE [Concomitant]

REACTIONS (4)
  - CARDIAC FAILURE CONGESTIVE [None]
  - CHEST PAIN [None]
  - OBSTRUCTION [None]
  - WEIGHT INCREASED [None]
